FAERS Safety Report 7646966-8 (Version None)
Quarter: 2011Q3

REPORT INFORMATION
  Report Type: 
  Country: None (occurrence: None)
  Receive Date: 20110729
  Receipt Date: 20110729
  Transmission Date: 20111222
  Serious: Yes (Other)
  Sender: FDA-Public Use
  Company Number: None

PATIENT
  Age: 75 Year
  Sex: Female

DRUGS (1)
  1. CIPROFLOXACIN [Suspect]
     Indication: NASOPHARYNGITIS
     Dosage: 1 TABLET 2 TIMES A DAY BY MOUTH
     Route: 048
     Dates: start: 20110120, end: 20110125

REACTIONS (3)
  - BACK PAIN [None]
  - TENDON DISORDER [None]
  - PAIN IN EXTREMITY [None]
